FAERS Safety Report 9992570 (Version 1)
Quarter: 2014Q1

REPORT INFORMATION
  Report Type: Spontaneous
  Country: US (occurrence: US)
  Receive Date: 20140310
  Receipt Date: 20140310
  Transmission Date: 20141002
  Serious: Yes (Other)
  Sender: FDA-Public Use
  Company Number: US-BRISTOL-MYERS SQUIBB COMPANY-20380994

PATIENT
  Age: 74 Year
  Sex: Female
  Weight: 61.22 kg

DRUGS (6)
  1. COUMADIN [Suspect]
     Dosage: TABLET?TWO AND HALF
  2. PROCARDIA XL [Suspect]
  3. PROTONIX [Suspect]
  4. GLUCOTROL [Suspect]
  5. LIPITOR [Suspect]
  6. ACCUPRIL [Suspect]

REACTIONS (1)
  - Cardiac disorder [Unknown]
